FAERS Safety Report 7841961-8 (Version None)
Quarter: 2011Q4

REPORT INFORMATION
  Report Type: 
  Country: None (occurrence: None)
  Receive Date: 20111025
  Receipt Date: 20111018
  Transmission Date: 20120403
  Serious: Yes (Hospitalization)
  Sender: FDA-Public Use
  Company Number: NL-SANOFI-AVENTIS-2011SA068542

PATIENT
  Age: 34 Year
  Sex: Male

DRUGS (1)
  1. FEXOFENADINE HCL [Suspect]
     Route: 048
     Dates: end: 20110501

REACTIONS (1)
  - ATRIOVENTRICULAR BLOCK COMPLETE [None]
